FAERS Safety Report 15227554 (Version 2)
Quarter: 2018Q3

REPORT INFORMATION
  Report Type: Report from Study
  Country: JP (occurrence: JP)
  Receive Date: 20180801
  Receipt Date: 20180802
  Transmission Date: 20181010
  Serious: Yes (Hospitalization)
  Sender: FDA-Public Use
  Company Number: JP-DSJP-DSJ-2018-114086

PATIENT

DRUGS (6)
  1. BEPRICOR [Concomitant]
     Active Substance: BEPRIDIL
     Indication: ATRIAL FIBRILLATION
     Dosage: 100MG/DAY
     Route: 048
     Dates: start: 20170214, end: 20170221
  2. EDOXABAN [Suspect]
     Active Substance: EDOXABAN TOSYLATE
     Indication: ATRIAL FIBRILLATION
     Dosage: 60 MG, QD
     Route: 048
     Dates: start: 20170209, end: 20170225
  3. CILNIDIPINE [Concomitant]
     Active Substance: CILNIDIPINE
     Dosage: 10MG/DAY
     Route: 048
  4. BISOPROLOL                         /00802602/ [Concomitant]
     Active Substance: BISOPROLOL
     Indication: ATRIAL FIBRILLATION
     Dosage: 1.25MG/DAY
     Route: 048
     Dates: start: 20170209
  5. TAMBOCOR [Concomitant]
     Active Substance: FLECAINIDE ACETATE
     Indication: ATRIAL FIBRILLATION
     Dosage: 150MG/DAY
     Route: 048
     Dates: start: 20170221, end: 20170508
  6. ELIQUIS [Concomitant]
     Active Substance: APIXABAN
     Dosage: 10MG/DAY
     Route: 048
     Dates: start: 20170226

REACTIONS (3)
  - Hyperbilirubinaemia [Recovered/Resolved]
  - Hepatic function abnormal [Recovered/Resolved]
  - Pyelonephritis acute [Recovered/Resolved]

NARRATIVE: CASE EVENT DATE: 201702
